FAERS Safety Report 9200543 (Version 2)
Quarter: 2013Q2

REPORT INFORMATION
  Report Type: Spontaneous
  Country: IT (occurrence: IT)
  Receive Date: 20130329
  Receipt Date: 20130529
  Transmission Date: 20140414
  Serious: Yes (Hospitalization)
  Sender: FDA-Public Use
  Company Number: IT-B.I. PHARMACEUTICALS,INC./RIDGEFIELD-2013-IT-00171IT

PATIENT
  Age: 86 Year
  Sex: Female

DRUGS (14)
  1. MIRAPEXIN [Suspect]
     Dosage: 1.8 MG
     Route: 048
     Dates: start: 20121221, end: 20121221
  2. ACETYLSALICYLIC ACID [Concomitant]
     Route: 048
  3. AMIODARONE [Concomitant]
     Route: 048
  4. LEVOFLOXACINA [Concomitant]
  5. CALCIUM CARBONATE [Concomitant]
     Route: 048
  6. SIMVASTATINA [Concomitant]
     Route: 048
  7. LANSOPRAZOLO [Concomitant]
     Route: 048
  8. TALOFEN [Concomitant]
     Dosage: STRENGHT: 4 G /100 ML
     Route: 048
  9. DILATREND [Concomitant]
     Route: 048
  10. ZYLORIC [Concomitant]
     Route: 048
  11. VENITRIN [Concomitant]
     Dosage: STRENGHT: 5 MG/24 HOUR
     Route: 062
  12. LASIX [Concomitant]
     Route: 048
  13. DELTACORTENE [Concomitant]
     Route: 048
  14. LUVION [Concomitant]
     Route: 048

REACTIONS (3)
  - Coma [Recovered/Resolved]
  - Hypotension [Recovered/Resolved]
  - Medication error [Recovered/Resolved]
